FAERS Safety Report 22363868 (Version 2)
Quarter: 2023Q2

REPORT INFORMATION
  Report Type: Report from Study
  Country: CA (occurrence: CA)
  Receive Date: 20230525
  Receipt Date: 20230622
  Transmission Date: 20230721
  Serious: Yes (Other)
  Sender: FDA-Public Use
  Company Number: CA-JNJFOC-20230549841

PATIENT
  Age: 14 Year
  Sex: Female
  Weight: 56.205 kg

DRUGS (2)
  1. REMICADE [Suspect]
     Active Substance: INFLIXIMAB
     Indication: Colitis ulcerative
     Route: 042
     Dates: start: 20221216
  2. REMICADE [Suspect]
     Active Substance: INFLIXIMAB
     Dosage: DOSE INCREASED
     Route: 041
     Dates: start: 20230619

REACTIONS (8)
  - Haematochezia [Not Recovered/Not Resolved]
  - Defaecation urgency [Unknown]
  - Malaise [Not Recovered/Not Resolved]
  - Loss of personal independence in daily activities [Unknown]
  - Weight decreased [Unknown]
  - Insomnia [Unknown]
  - Frequent bowel movements [Unknown]
  - Abdominal pain [Not Recovered/Not Resolved]

NARRATIVE: CASE EVENT DATE: 20230501
